FAERS Safety Report 9202543 (Version 1)
Quarter: 2013Q2

REPORT INFORMATION
  Report Type: Spontaneous
  Country: US (occurrence: US)
  Receive Date: 20130401
  Receipt Date: 20130401
  Transmission Date: 20140414
  Serious: No
  Sender: FDA-Public Use
  Company Number: US-009507513-1303USA013370

PATIENT
  Sex: Female

DRUGS (1)
  1. NUVARING [Suspect]
     Route: 067

REACTIONS (2)
  - Musculoskeletal pain [Unknown]
  - Weight increased [Unknown]
